FAERS Safety Report 9431302 (Version 3)
Quarter: 2014Q1

REPORT INFORMATION
  Report Type: Spontaneous
  Country: JP (occurrence: JP)
  Receive Date: 20130730
  Receipt Date: 20140318
  Transmission Date: 20141002
  Serious: Yes (Death, Hospitalization, Other)
  Sender: FDA-Public Use
  Company Number: JP-B.I. PHARMACEUTICALS,INC./RIDGEFIELD-2013-BI-22571NB

PATIENT
  Age: 83 Year
  Sex: Male

DRUGS (1)
  1. TRAZENTA [Suspect]
     Indication: DIABETES MELLITUS
     Dosage: 5 MG
     Route: 048

REACTIONS (8)
  - Cardiac failure acute [Fatal]
  - Blood lactate dehydrogenase increased [Unknown]
  - Blood urea increased [Unknown]
  - Blood creatinine increased [Unknown]
  - Haematemesis [Unknown]
  - Alanine aminotransferase increased [Unknown]
  - Aspartate aminotransferase increased [Unknown]
  - Dyspnoea exertional [Unknown]
